FAERS Safety Report 7830211-4 (Version None)
Quarter: 2011Q4

REPORT INFORMATION
  Report Type: 
  Country: None (occurrence: None)
  Receive Date: 20111021
  Receipt Date: 20111017
  Transmission Date: 20120403
  Serious: Yes (Hospitalization)
  Sender: FDA-Public Use
  Company Number: DE-SANOFI-AVENTIS-2011SA053222

PATIENT
  Age: 58 Year
  Sex: Male
  Weight: 127 kg

DRUGS (16)
  1. CAPECITABINE [Suspect]
     Indication: RECTAL CANCER
     Route: 048
     Dates: start: 20110509
  2. PANTOPRAZOLE [Concomitant]
     Indication: PROPHYLAXIS
     Route: 048
  3. LASIX [Concomitant]
     Indication: HYPERTENSION
     Route: 048
  4. THERAPEUTIC RADIOPHARMACEUTICALS [Suspect]
     Indication: RECTAL CANCER
     Dosage: ACTUAL DOSE: 1.8 GYCUMULATIVE DOSE: 50.4 GY WITH A NUMBER OF FRACTION REPORTED AS 28.
     Dates: start: 20110524, end: 20110701
  5. GLYBURIDE [Concomitant]
     Route: 048
  6. CONCOR [Concomitant]
     Indication: HYPERTENSION
     Route: 048
  7. METRONIDAZOLE [Concomitant]
     Route: 042
     Dates: start: 20110729, end: 20110729
  8. METFORMIN HCL [Concomitant]
     Route: 048
  9. AMLODIPINE [Concomitant]
     Route: 048
  10. RAMIPRIL [Concomitant]
     Indication: HYPERTENSION
     Route: 048
  11. ESIDRIX [Concomitant]
     Route: 048
  12. OXALIPLATIN [Suspect]
     Indication: RECTAL CANCER
     Route: 042
     Dates: start: 20110505
  13. ALL OTHER THERAPEUTIC PRODUCTS [Concomitant]
     Route: 048
  14. ASPIRIN [Concomitant]
     Route: 048
  15. SIMVASTATIN [Concomitant]
     Route: 048
  16. CEFUROXIME [Concomitant]
     Dates: start: 20110729, end: 20110729

REACTIONS (2)
  - IMPAIRED HEALING [None]
  - WOUND INFECTION [None]
